FAERS Safety Report 8762257 (Version 1)
Quarter: 2012Q4

REPORT INFORMATION
  Report Type: 
  Country: US (occurrence: US)
  Receive Date: 20120828
  Receipt Date: 20120828
  Transmission Date: 20130627
  Serious: No
  Sender: FDA-Public Use
  Company Number: US-GLAXOSMITHKLINE-A0948654A

PATIENT
  Age: 63 Year
  Sex: Female

DRUGS (2)
  1. BECONASE [Suspect]
     Indication: NASAL CONGESTION
     Dosage: 2SPR Twice per day
     Route: 045
     Dates: start: 20110917
  2. COMBIVENT [Concomitant]

REACTIONS (1)
  - Therapeutic response decreased [Unknown]
